FAERS Safety Report 4291626-7 (Version None)
Quarter: 2004Q1

REPORT INFORMATION
  Report Type: 
  Country: None (occurrence: None)
  Receive Date: 20040210
  Receipt Date: 20040210
  Transmission Date: 20041129
  Serious: Yes (Other)
  Sender: FDA-Public Use
  Company Number: None

PATIENT
  Age: 49 Year
  Sex: Female
  Weight: 54.4316 kg

DRUGS (1)
  1. ZICAM [Suspect]
     Indication: NASOPHARYNGITIS
     Dosage: PUMP ONCE EACH ANOST NASAL
     Route: 045
     Dates: start: 20040101, end: 20040102

REACTIONS (8)
  - AGEUSIA [None]
  - ANOSMIA [None]
  - BURNING SENSATION [None]
  - CONDITION AGGRAVATED [None]
  - EYE IRRITATION [None]
  - NASOPHARYNGITIS [None]
  - OEDEMA MUCOSAL [None]
  - SINUS DISORDER [None]
